FAERS Safety Report 5626184-5 (Version None)
Quarter: 2008Q1

REPORT INFORMATION
  Report Type: 
  Country: None (occurrence: None)
  Receive Date: 20080214
  Receipt Date: 20080207
  Transmission Date: 20080703
  Serious: Yes (Other)
  Sender: FDA-Public Use
  Company Number: CA-WYE-H02557208

PATIENT
  Age: 50 Year
  Sex: Male

DRUGS (1)
  1. ADVIL [Suspect]
     Indication: HEADACHE
     Dosage: UNKNOWN DOSE AS NEEDED
     Route: 048
     Dates: start: 20080206, end: 20080206

REACTIONS (11)
  - CHEST PAIN [None]
  - DYSPNOEA [None]
  - EYE DISORDER [None]
  - EYE SWELLING [None]
  - HYPERSENSITIVITY [None]
  - LIP BLISTER [None]
  - LIP SWELLING [None]
  - PHARYNGEAL OEDEMA [None]
  - TONGUE BLISTERING [None]
  - URTICARIA [None]
  - VOMITING [None]
